FAERS Safety Report 20603320 (Version 3)
Quarter: 2022Q2

REPORT INFORMATION
  Report Type: Spontaneous
  Country: US (occurrence: US)
  Receive Date: 20220316
  Receipt Date: 20220402
  Transmission Date: 20220720
  Serious: No
  Sender: FDA-Public Use
  Company Number: US-TEVA-2022-US-2009410

PATIENT
  Age: 59 Year
  Sex: Female

DRUGS (2)
  1. LORAZEPAM [Suspect]
     Active Substance: LORAZEPAM
     Indication: Product used for unknown indication
     Route: 065
     Dates: start: 20220214
  2. LORAZEPAM [Suspect]
     Active Substance: LORAZEPAM
     Dosage: EVERY 6 HOURS
     Route: 065

REACTIONS (6)
  - Sensitisation [Unknown]
  - Dizziness [Unknown]
  - Abdominal discomfort [Unknown]
  - Discontinued product administered [Unknown]
  - Feeling abnormal [Not Recovered/Not Resolved]
  - Malaise [Not Recovered/Not Resolved]

NARRATIVE: CASE EVENT DATE: 20220201
